FAERS Safety Report 7079215-2 (Version None)
Quarter: 2010Q4

REPORT INFORMATION
  Report Type: 
  Country: None (occurrence: None)
  Receive Date: 20101102
  Receipt Date: 20101022
  Transmission Date: 20110411
  Serious: Yes (Hospitalization)
  Sender: FDA-Public Use
  Company Number: FR-NOVOPROD-317090

PATIENT
  Age: 63 Year
  Sex: Male

DRUGS (4)
  1. VICTOZA [Suspect]
     Indication: TYPE 2 DIABETES MELLITUS
     Dosage: 0.6 MG, QD
     Route: 058
     Dates: start: 20100520, end: 20100913
  2. GLICLAZ [Concomitant]
     Dosage: 90 MG, UNK
     Route: 048
     Dates: start: 20060101
  3. RAMIPRIL [Concomitant]
     Dosage: 2.5 MG, QD
     Route: 048
     Dates: start: 20060101
  4. METFORMIN [Concomitant]
     Dosage: 850 MG, QD
     Route: 048
     Dates: start: 20060101

REACTIONS (1)
  - PANCREATITIS ACUTE [None]
